FAERS Safety Report 14923470 (Version 1)
Quarter: 2018Q2

REPORT INFORMATION
  Report Type: Spontaneous
  Country: US (occurrence: US)
  Receive Date: 20180522
  Receipt Date: 20180522
  Transmission Date: 20180711
  Serious: Yes (Death)
  Sender: FDA-Public Use
  Company Number: US-INSYS THERAPEUTICS, INC-INS201805-000162

PATIENT
  Age: 24 Year
  Sex: Female

DRUGS (2)
  1. FENTANYL. [Suspect]
     Active Substance: FENTANYL
     Indication: PRODUCT USED FOR UNKNOWN INDICATION
  2. ACETYL FENTANYL [Suspect]
     Active Substance: ACETYLFENTANYL

REACTIONS (2)
  - Overdose [Fatal]
  - Toxicity to various agents [Fatal]
